FAERS Safety Report 6895920-2 (Version None)
Quarter: 2010Q3

REPORT INFORMATION
  Report Type: 
  Country: None (occurrence: None)
  Receive Date: 20100802
  Receipt Date: 20100723
  Transmission Date: 20110219
  Serious: Yes (Hospitalization)
  Sender: FDA-Public Use
  Company Number: GXKR2010GB08264

PATIENT
  Age: 89 Year
  Sex: Female

DRUGS (2)
  1. ATENOLOL (NGX) [Suspect]
     Indication: HYPERTENSION
     Dosage: 25 MG, QD
     Route: 048
  2. LANTUS [Concomitant]
     Dosage: 12 IU, UNK
     Route: 058
     Dates: end: 20100709

REACTIONS (1)
  - LIP SWELLING [None]
